FAERS Safety Report 7473133-3 (Version None)
Quarter: 2011Q2

REPORT INFORMATION
  Report Type: 
  Country: None (occurrence: None)
  Receive Date: 20110511
  Receipt Date: 20110509
  Transmission Date: 20111010
  Serious: Yes (Life-Threatening, Hospitalization, Disabling)
  Sender: FDA-Public Use
  Company Number: PHHY2011GB38341

PATIENT
  Sex: Male

DRUGS (12)
  1. FRUSEMIDE [Concomitant]
     Indication: CARDIAC FAILURE
     Dosage: 40 MG, QD
     Route: 048
  2. RAMIPRIL [Concomitant]
     Dosage: 2.5 MG, QD
     Route: 048
  3. HYDROXOCOBALAMIN [Concomitant]
     Indication: VITAMIN B12 DEFICIENCY
     Dosage: 1 MG, UNK
  4. SENNA-MINT WAF [Concomitant]
     Indication: CONSTIPATION
     Dosage: 7.5 MG, UNK
     Route: 048
  5. OMEPRAZOLE [Concomitant]
     Dosage: 20 MG, QD
     Route: 048
  6. RIFAMPICIN [Concomitant]
     Indication: TUBERCULOSIS
  7. BISOPROLOL [Concomitant]
     Indication: CARDIAC FAILURE
     Dosage: 5 MG, QD
  8. ISONIAZID [Concomitant]
     Indication: TUBERCULOSIS
  9. SIMVASTATIN [Suspect]
     Indication: CARDIAC FAILURE
     Dosage: 40 MG, QD
     Route: 048
  10. CITALOPRAM HYDROBROMIDE [Concomitant]
     Indication: DEPRESSION
     Dosage: 10 MG, QD
  11. PYRAZINAMIDE [Concomitant]
     Indication: TUBERCULOSIS
  12. FORTISIP [Concomitant]
     Indication: NUTRITIONAL SUPPORT
     Dosage: 1 DF, TID

REACTIONS (5)
  - PULMONARY FIBROSIS [None]
  - DYSPNOEA [None]
  - COUGH [None]
  - WEIGHT DECREASED [None]
  - BLOOD UREA INCREASED [None]
